FAERS Safety Report 8299504-3 (Version None)
Quarter: 2012Q2

REPORT INFORMATION
  Report Type: 
  Country: None (occurrence: None)
  Receive Date: 20120419
  Receipt Date: 20120416
  Transmission Date: 20120825
  Serious: No
  Sender: FDA-Public Use
  Company Number: US-B.I. PHARMACEUTICALS,INC./RIDGEFIELD-2012-BP-07178BP

PATIENT
  Sex: Female

DRUGS (8)
  1. CLARITIN [Concomitant]
     Indication: SINUSITIS
  2. VITAMIN B-12 [Concomitant]
     Indication: ANAEMIA
  3. COMBIVENT [Concomitant]
     Indication: CHRONIC OBSTRUCTIVE PULMONARY DISEASE
     Dates: start: 20060101
  4. DEEP SEA NASAL MOISTURE SPRAY [Concomitant]
     Indication: SINUSITIS
     Route: 045
  5. SPIRIVA [Suspect]
     Indication: CHRONIC OBSTRUCTIVE PULMONARY DISEASE
     Dosage: 18 MCG
     Route: 055
     Dates: start: 20120201
  6. FOSAMAX [Concomitant]
     Indication: OSTEOPOROSIS
  7. OXYGEN [Concomitant]
     Indication: CHRONIC OBSTRUCTIVE PULMONARY DISEASE
  8. FLOVENT [Concomitant]
     Indication: CHRONIC OBSTRUCTIVE PULMONARY DISEASE

REACTIONS (1)
  - THROAT TIGHTNESS [None]
